FAERS Safety Report 25058560 (Version 1)
Quarter: 2025Q1

REPORT INFORMATION
  Report Type: Spontaneous
  Country: US (occurrence: US)
  Receive Date: 20250310
  Receipt Date: 20250310
  Transmission Date: 20250409
  Serious: Yes (Death, Life-Threatening)
  Sender: ACCORD
  Company Number: US-MLMSERVICE-20250221-PI413434-00218-3

PATIENT
  Age: 61 Year
  Sex: Male

DRUGS (7)
  1. METHOTREXATE [Suspect]
     Active Substance: METHOTREXATE
     Indication: Psoriatic arthropathy
  2. MYCOPHENOLIC ACID [Suspect]
     Active Substance: MYCOPHENOLIC ACID
     Indication: Psoriatic arthropathy
  3. LEFLUNOMIDE [Suspect]
     Active Substance: LEFLUNOMIDE
     Indication: Psoriatic arthropathy
  4. SECUKINUMAB [Suspect]
     Active Substance: SECUKINUMAB
     Indication: Psoriatic arthropathy
  5. SULFASALAZINE [Suspect]
     Active Substance: SULFASALAZINE
     Indication: Psoriatic arthropathy
  6. ADALIMUMAB [Suspect]
     Active Substance: ADALIMUMAB
     Indication: Psoriatic arthropathy
  7. METHYLPREDNISOLONE [Suspect]
     Active Substance: METHYLPREDNISOLONE
     Indication: Psoriatic arthropathy

REACTIONS (11)
  - Epstein-Barr virus associated lymphoma [Fatal]
  - Cutaneous B-cell lymphoma [Fatal]
  - Marginal zone lymphoma [Fatal]
  - Lymphoma transformation [Fatal]
  - Plasmablastic lymphoma [Fatal]
  - Anaemia macrocytic [Fatal]
  - Upper gastrointestinal haemorrhage [Fatal]
  - Gastric ulcer haemorrhage [Fatal]
  - Metastases to lymph nodes [Fatal]
  - Clonal haematopoiesis [Fatal]
  - Off label use [Unknown]

NARRATIVE: CASE EVENT DATE: 20210101
